FAERS Safety Report 8821902 (Version 3)
Quarter: 2012Q4

REPORT INFORMATION
  Report Type: 
  Country: US (occurrence: US)
  Receive Date: 20121003
  Receipt Date: 20121114
  Transmission Date: 20130627
  Serious: Yes (Hospitalization, Disabling, Other)
  Sender: FDA-Public Use
  Company Number: US-009507513-1205USA04491

PATIENT

DRUGS (13)
  1. FOSAMAX [Suspect]
     Indication: OSTEOPOROSIS
     Dosage: 70 mg, qw
     Route: 048
     Dates: start: 20011205, end: 20080706
  2. FOSAMAX [Suspect]
     Indication: OSTEOPENIA
  3. FOSAMAX [Suspect]
     Indication: OSTEOPOROSIS
     Dosage: 70 mg, UNK
     Route: 048
     Dates: start: 20110404
  4. ALENDRONATE SODIUM [Suspect]
     Dosage: 70 mg, UNK
     Dates: start: 20080707
  5. ASCORBIC ACID [Concomitant]
  6. VITAMINS (UNSPECIFIED) [Concomitant]
  7. CALCIUM (UNSPECIFIED) [Concomitant]
  8. VITAMIN D (UNSPECIFIED) [Concomitant]
  9. MILK THISTLE [Concomitant]
  10. OMEGA-3 MARINE TRIGLYCERIDES [Concomitant]
  11. HORMONES (UNSPECIFIED) [Concomitant]
     Dosage: UNK
     Dates: start: 1996, end: 2001
  12. PREDNISONE [Concomitant]
     Indication: AUTOIMMUNE HEPATITIS
     Dosage: 40 mg, qd
     Route: 048
     Dates: start: 200110
  13. COZAAR [Concomitant]
     Dosage: 50 mg, qd
     Dates: end: 20050303

REACTIONS (49)
  - Open reduction of fracture [Unknown]
  - Osteoporosis [Not Recovered/Not Resolved]
  - Stress fracture [Not Recovered/Not Resolved]
  - Low turnover osteopathy [Not Recovered/Not Resolved]
  - Sinus operation [Unknown]
  - Surgery [Unknown]
  - Diabetes mellitus [Unknown]
  - Femur fracture [Not Recovered/Not Resolved]
  - Ligament sprain [Unknown]
  - Contusion [Unknown]
  - Femur fracture [Not Recovered/Not Resolved]
  - Fall [Unknown]
  - Wrist fracture [Unknown]
  - Hypertension [Unknown]
  - Asthma [Unknown]
  - Sinusitis [Unknown]
  - Infection [Unknown]
  - Cough [Unknown]
  - Jaundice [Recovering/Resolving]
  - Sinusitis [Unknown]
  - Stress at work [Unknown]
  - Exostosis [Unknown]
  - Joint stiffness [Unknown]
  - Rib fracture [Recovering/Resolving]
  - Periarthritis [Unknown]
  - Ligament disorder [Unknown]
  - Osteoarthritis [Unknown]
  - Musculoskeletal chest pain [Unknown]
  - Osteoarthritis [Unknown]
  - Ligament sprain [Unknown]
  - Scoliosis [Unknown]
  - Incontinence [Unknown]
  - Radius fracture [Unknown]
  - Atelectasis [Unknown]
  - Pleural fibrosis [Unknown]
  - Hiatus hernia [Unknown]
  - Adrenal mass [Unknown]
  - Liver disorder [Unknown]
  - Pubis fracture [Unknown]
  - Joint crepitation [Unknown]
  - Hypersensitivity [Not Recovered/Not Resolved]
  - Arthralgia [Unknown]
  - Arthralgia [Unknown]
  - Diabetes mellitus [Unknown]
  - Seasonal allergy [Unknown]
  - Fibula fracture [Unknown]
  - Excoriation [Unknown]
  - Contusion [Unknown]
  - Fall [Unknown]
